FAERS Safety Report 21962390 (Version 3)
Quarter: 2025Q3

REPORT INFORMATION
  Report Type: Report from Study
  Country: US (occurrence: US)
  Receive Date: 20230207
  Receipt Date: 20250911
  Transmission Date: 20251020
  Serious: Yes (Other)
  Sender: ESTEVE
  Company Number: US-ORG100014127-2022000874

PATIENT
  Age: 52 Year
  Sex: Female

DRUGS (18)
  1. LYSODREN [Suspect]
     Active Substance: MITOTANE
     Indication: Renal cancer
     Dates: start: 20220715
  2. LYSODREN [Suspect]
     Active Substance: MITOTANE
     Indication: Adrenocortical carcinoma
  3. LYSODREN [Suspect]
     Active Substance: MITOTANE
     Indication: Adrenal gland cancer
  4. LYSODREN [Suspect]
     Active Substance: MITOTANE
     Indication: Hepatic cancer
  5. LYSODREN [Suspect]
     Active Substance: MITOTANE
     Dates: start: 20221122
  6. FLUDROCORTISONE [Concomitant]
     Active Substance: FLUDROCORTISONE
  7. DABIGATRAN [Concomitant]
     Active Substance: DABIGATRAN
  8. CLARITIN [Concomitant]
     Active Substance: LORATADINE
  9. LEVOTHYROXINE [Concomitant]
     Active Substance: LEVOTHYROXINE
  10. REPATHA PUSHTRONEX 420MG/3.5ML CRTG [Concomitant]
  11. DABIGATRAN [Concomitant]
     Active Substance: DABIGATRAN
  12. PRILOSEC [Concomitant]
     Active Substance: OMEPRAZOLE MAGNESIUM
  13. Tylenlol [Concomitant]
  14. SENNA [Concomitant]
     Active Substance: SENNOSIDES
  15. COMPAZINE [Concomitant]
     Active Substance: PROCHLORPERAZINE MALEATE
  16. ZOFRAN [Concomitant]
     Active Substance: ONDANSETRON HYDROCHLORIDE
  17. ATIVAN [Concomitant]
     Active Substance: LORAZEPAM
  18. HYDROCORTISONE ACETATE [Concomitant]
     Active Substance: HYDROCORTISONE ACETATE

REACTIONS (10)
  - Neuropathy peripheral [Recovering/Resolving]
  - Back pain [Not Recovered/Not Resolved]
  - Arthralgia [Not Recovered/Not Resolved]
  - Abdominal pain [Not Recovered/Not Resolved]
  - Nasopharyngitis [Not Recovered/Not Resolved]
  - Product dose omission issue [Recovered/Resolved]
  - Off label use [Unknown]
  - Nausea [Recovering/Resolving]
  - Dysgeusia [Not Recovered/Not Resolved]
  - Constipation [Not Recovered/Not Resolved]

NARRATIVE: CASE EVENT DATE: 20220715
